FAERS Safety Report 16575447 (Version 1)
Quarter: 2019Q3

REPORT INFORMATION
  Report Type: Spontaneous
  Country: US (occurrence: US)
  Receive Date: 20190601
  Receipt Date: 20190601
  Transmission Date: 20191004
  Serious: Yes (Hospitalization)
  Sender: FDA-Public Use
  Company Number: None

PATIENT
  Age: 64 Year
  Sex: Female

DRUGS (4)
  1. CALCIUM [Concomitant]
     Active Substance: CALCIUM
  2. LEVAQUIN [Concomitant]
     Active Substance: LEVOFLOXACIN
  3. METRONIDAZOL [Concomitant]
     Active Substance: METRONIDAZOLE
  4. MYFORTIC [Suspect]
     Active Substance: MYCOPHENOLATE SODIUM
     Indication: RENAL TRANSPLANT
     Route: 048
     Dates: start: 20170906

REACTIONS (2)
  - Hospitalisation [None]
  - Ill-defined disorder [None]

NARRATIVE: CASE EVENT DATE: 20190528
